FAERS Safety Report 5036151-0 (Version None)
Quarter: 2006Q2

REPORT INFORMATION
  Report Type: 
  Country: None (occurrence: None)
  Receive Date: 20060627
  Receipt Date: 20060621
  Transmission Date: 20061013
  Serious: Yes (Other)
  Sender: FDA-Public Use
  Company Number: US-MERCK-0606USA04146

PATIENT
  Age: 53 Year
  Sex: Female

DRUGS (2)
  1. FOSAMAX [Suspect]
     Route: 048
     Dates: start: 20030101
  2. CALCIUM (UNSPECIFIED) [Concomitant]
     Route: 065

REACTIONS (2)
  - BREAST CANCER [None]
  - TEMPOROMANDIBULAR JOINT SYNDROME [None]
